FAERS Safety Report 22034759 (Version 4)
Quarter: 2023Q1

REPORT INFORMATION
  Report Type: Report from Study
  Country: DE (occurrence: None)
  Receive Date: 20230224
  Receipt Date: 20230331
  Transmission Date: 20230417
  Serious: Yes (Hospitalization)
  Sender: FDA-Public Use
  Company Number: DE-ROCHE-3292241

PATIENT
  Age: 53 Year
  Sex: Male

DRUGS (6)
  1. OBINUTUZUMAB [Suspect]
     Active Substance: OBINUTUZUMAB
     Indication: Chronic lymphocytic leukaemia
     Dosage: THE LAST DOSE OF OBINUTUZUMAB WAS 1000 MG RECEIVED ON 20/JUN/2022
     Route: 042
     Dates: start: 20220127, end: 20220620
  2. VENETOCLAX [Suspect]
     Active Substance: VENETOCLAX
     Indication: Chronic lymphocytic leukaemia
     Dosage: LAST DOSE OF VENETOCLAX 400 MG RECEIVED ON 21/DEC/2022
     Route: 048
     Dates: start: 20220217, end: 20221221
  3. ACYCLOVIR [Concomitant]
     Active Substance: ACYCLOVIR
  4. BRIVUDINE [Concomitant]
     Active Substance: BRIVUDINE
  5. NOVALGIN (METAMIZOLE SODIUM) [Concomitant]
     Active Substance: METAMIZOLE SODIUM
  6. ENOXAPARIN SODIUM [Concomitant]
     Active Substance: ENOXAPARIN SODIUM
     Dates: start: 20230215

REACTIONS (2)
  - COVID-19 pneumonia [Recovered/Resolved]
  - Pneumonia [Recovered/Resolved]

NARRATIVE: CASE EVENT DATE: 20230214
